FAERS Safety Report 9037761 (Version 1)
Quarter: 2013Q1

REPORT INFORMATION
  Report Type: Spontaneous
  Country: RO (occurrence: RO)
  Receive Date: 20130129
  Receipt Date: 20130129
  Transmission Date: 20140127
  Serious: Yes (Death, Hospitalization)
  Sender: FDA-Public Use
  Company Number: RO-AMGEN-ROUSP2013005906

PATIENT
  Age: 28 Year
  Sex: Female
  Weight: 25 kg

DRUGS (4)
  1. ENBREL [Suspect]
     Indication: RHEUMATOID ARTHRITIS
     Dosage: 50 MG, UNK
     Route: 058
     Dates: start: 200610, end: 20121205
  2. MEDROL                             /00049601/ [Concomitant]
     Indication: RHEUMATOID ARTHRITIS
     Dosage: 6-8 MG, 1X/DAILY
     Route: 048
     Dates: start: 2005, end: 20121205
  3. KETONAL                            /00321701/ [Concomitant]
     Indication: RHEUMATOID ARTHRITIS
     Dosage: 100-200 MG, 1X/DAY
     Route: 048
     Dates: start: 2004, end: 20121205
  4. TRAMADOL [Concomitant]
     Indication: RHEUMATOID ARTHRITIS
     Dosage: 50 MG, UNK
     Route: 048
     Dates: start: 2006, end: 20121205

REACTIONS (5)
  - Cardiopulmonary failure [Fatal]
  - Diverticular perforation [Fatal]
  - Wound evisceration [Unknown]
  - Septic shock [Fatal]
  - Retroperitoneal abscess [Unknown]
